FAERS Safety Report 17082812 (Version 3)
Quarter: 2020Q1

REPORT INFORMATION
  Report Type: Spontaneous
  Country: US (occurrence: US)
  Receive Date: 20191127
  Receipt Date: 20200213
  Transmission Date: 20200409
  Serious: Yes (Other)
  Sender: FDA-Public Use
  Company Number: US-PFIZER INC-2019512212

PATIENT
  Age: 63 Year
  Sex: Female

DRUGS (8)
  1. CAMPTOSAR [Suspect]
     Active Substance: IRINOTECAN HYDROCHLORIDE
     Indication: COLON CANCER
     Dosage: 300 MG  EVERY 2 WEEKS
  2. CAMPTOSAR [Suspect]
     Active Substance: IRINOTECAN HYDROCHLORIDE
     Dosage: 300 MG EVERY 2 WEEKS
     Dates: start: 20191203, end: 20191203
  3. CAMPTOSAR [Suspect]
     Active Substance: IRINOTECAN HYDROCHLORIDE
     Dosage: 300 MG EVERY 2 WEEKS
     Dates: start: 20191231, end: 20191231
  4. CAMPTOSAR [Suspect]
     Active Substance: IRINOTECAN HYDROCHLORIDE
     Dosage: 300 MG EVERY 2 WEEKS
     Dates: start: 20200128
  5. CAMPTOSAR [Suspect]
     Active Substance: IRINOTECAN HYDROCHLORIDE
     Dosage: 300 MG  EVERY 2 WEEKS
     Dates: start: 20191105, end: 20191105
  6. CAMPTOSAR [Suspect]
     Active Substance: IRINOTECAN HYDROCHLORIDE
     Dosage: 300 MG EVERY 2 WEEKS
     Dates: start: 20191217, end: 20191217
  7. CAMPTOSAR [Suspect]
     Active Substance: IRINOTECAN HYDROCHLORIDE
     Dosage: 300 MG EVERY 2 WEEKS
     Dates: start: 20200114, end: 20200114
  8. CAMPTOSAR [Suspect]
     Active Substance: IRINOTECAN HYDROCHLORIDE
     Dosage: 300 MG EVERY 2 WEEKS
     Dates: start: 20191119, end: 20191119

REACTIONS (3)
  - Intestinal haemorrhage [Unknown]
  - Iron deficiency [Unknown]
  - Anaemia [Unknown]
